FAERS Safety Report 17175215 (Version 1)
Quarter: 2019Q4

REPORT INFORMATION
  Report Type: Spontaneous
  Country: FI (occurrence: FI)
  Receive Date: 20191219
  Receipt Date: 20191219
  Transmission Date: 20200122
  Serious: Yes (Hospitalization)
  Sender: FDA-Public Use
  Company Number: FI-009507513-1912FIN007805

PATIENT
  Age: 66 Year
  Sex: Male

DRUGS (7)
  1. DUACT [Suspect]
     Active Substance: ACRIVASTINE\PSEUDOEPHEDRINE HYDROCHLORIDE
     Indication: RHINITIS
     Route: 048
     Dates: start: 201004, end: 20100408
  2. NASONEX [Suspect]
     Active Substance: MOMETASONE FUROATE
     Route: 045
  3. SIR EPHEDRIN [Suspect]
     Active Substance: DEXTROMETHORPHAN HYDROBROMIDE\EPHEDRINE HYDROCHLORIDE
     Indication: COUGH
     Route: 048
     Dates: start: 201004, end: 20100408
  4. ZOPICLONE [Concomitant]
     Active Substance: ZOPICLONE
     Dosage: 7.5,MG,DAILY
     Route: 048
  5. TRAMAL RETARD [Concomitant]
     Active Substance: TRAMADOL
     Dosage: 300,MG,DAILY
     Route: 048
  6. TAMSULOSIN HYDROCHLORIDE. [Concomitant]
     Active Substance: TAMSULOSIN HYDROCHLORIDE
     Dosage: 0.4,MG,DAILY
     Route: 048
  7. PANADOL [Concomitant]
     Active Substance: ACETAMINOPHEN

REACTIONS (17)
  - Stevens-Johnson syndrome [Not Recovered/Not Resolved]
  - Erythema multiforme [Not Recovered/Not Resolved]
  - Haematoma [Not Recovered/Not Resolved]
  - Swelling of eyelid [Not Recovered/Not Resolved]
  - Rash [Not Recovered/Not Resolved]
  - Skin oedema [Not Recovered/Not Resolved]
  - Skin necrosis [Not Recovered/Not Resolved]
  - Pyrexia [Not Recovered/Not Resolved]
  - C-reactive protein increased [Not Recovered/Not Resolved]
  - Inflammation [Not Recovered/Not Resolved]
  - Eye disorder [Not Recovered/Not Resolved]
  - Erythema [Not Recovered/Not Resolved]
  - Skin ulcer [Not Recovered/Not Resolved]
  - Eye pain [Not Recovered/Not Resolved]
  - Eye irritation [Not Recovered/Not Resolved]
  - Dermatitis bullous [Not Recovered/Not Resolved]
  - Infection [Not Recovered/Not Resolved]

NARRATIVE: CASE EVENT DATE: 20100406
